FAERS Safety Report 16965351 (Version 1)
Quarter: 2019Q4

REPORT INFORMATION
  Report Type: Spontaneous
  Country: US (occurrence: US)
  Receive Date: 20190910
  Receipt Date: 20190910
  Transmission Date: 20200122
  Serious: No
  Sender: FDA-Public Use
  Company Number: None

PATIENT
  Sex: Female
  Weight: 47 kg

DRUGS (1)
  1. BEVACIZUMAB (RHUMAB VEGF)-INCOMPLETE TRANSMISSION [Suspect]
     Active Substance: BEVACIZUMAB

REACTIONS (4)
  - Mental status changes [None]
  - Unresponsive to stimuli [None]
  - Speech disorder [None]
  - Cerebrovascular accident [None]

NARRATIVE: CASE EVENT DATE: 20181210
